FAERS Safety Report 9612652 (Version 1)
Quarter: 2013Q4

REPORT INFORMATION
  Report Type: Spontaneous
  Country: FR (occurrence: FR)
  Receive Date: 20131010
  Receipt Date: 20131010
  Transmission Date: 20140711
  Serious: Yes (Hospitalization, Other)
  Sender: FDA-Public Use
  Company Number: FR-PFIZER INC-2013285797

PATIENT
  Age: 17 Year
  Sex: Male

DRUGS (25)
  1. DEPO-MEDROL [Suspect]
     Indication: PRECURSOR T-LYMPHOBLASTIC LYMPHOMA/LEUKAEMIA
     Dosage: 40 MG, DAILY
     Route: 037
     Dates: start: 20130815, end: 20130815
  2. DEPO-MEDROL [Suspect]
     Dosage: 40 MG, DAILY
     Route: 037
     Dates: start: 20130826, end: 20130826
  3. KIDROLASE [Suspect]
     Indication: PRECURSOR T-LYMPHOBLASTIC LYMPHOMA/LEUKAEMIA
     Dosage: 10000 IU, DAILY
     Route: 048
     Dates: start: 20130815, end: 20130815
  4. KIDROLASE [Suspect]
     Dosage: 10000 IU, DAILY
     Route: 048
     Dates: start: 20130817, end: 20130817
  5. KIDROLASE [Suspect]
     Dosage: 10000 IU, DAILY
     Route: 048
     Dates: start: 20130820, end: 20130820
  6. KIDROLASE [Suspect]
     Dosage: 10000 IU, DAILY
     Route: 048
     Dates: start: 20130829, end: 20130829
  7. KIDROLASE [Suspect]
     Dosage: 10000 IU, DAILY
     Route: 048
     Dates: start: 20130831, end: 20130831
  8. KIDROLASE [Suspect]
     Dosage: 10000 IU, DAILY
     Route: 048
     Dates: start: 20130902, end: 20130902
  9. KIDROLASE [Suspect]
     Dosage: 10000 IU, DAILY
     Route: 048
     Dates: start: 20130904, end: 20130904
  10. METHOTREXATE [Suspect]
     Indication: PRECURSOR T-LYMPHOBLASTIC LYMPHOMA/LEUKAEMIA
     Dosage: 15 MG, DAILY
     Dates: start: 20130806
  11. METHOTREXATE [Suspect]
     Dosage: 15 MG, DAILY
     Route: 037
     Dates: start: 20130815, end: 20130815
  12. METHOTREXATE [Suspect]
     Dosage: 15 MG, DAILY
     Route: 037
     Dates: start: 20130826, end: 20130826
  13. CYTARABINE EBEWE [Suspect]
     Indication: PRECURSOR T-LYMPHOBLASTIC LYMPHOMA/LEUKAEMIA
     Dosage: 40 MG, DAILY
     Route: 037
     Dates: start: 20130815, end: 20130815
  14. CYTARABINE EBEWE [Suspect]
     Dosage: 40 MG, DAILY
     Route: 037
     Dates: start: 20130826, end: 20130826
  15. VINCRISTINE [Concomitant]
     Indication: PRECURSOR T-LYMPHOBLASTIC LYMPHOMA/LEUKAEMIA
     Dosage: 2 MG, DAILY
     Dates: start: 20130808, end: 20130808
  16. VINCRISTINE HOSPIRA [Concomitant]
     Dosage: 2 MG, DAILY
     Dates: start: 20130815, end: 20130815
  17. VINCRISTINE HOSPIRA [Concomitant]
     Dosage: 2 MG, DAILY
     Dates: start: 20130829, end: 20130829
  18. DAUNORUBICIN [Concomitant]
     Indication: PRECURSOR T-LYMPHOBLASTIC LYMPHOMA/LEUKAEMIA
     Dosage: 90 MG, DAILY
     Dates: start: 20130808, end: 20130810
  19. DAUNORUBICIN [Concomitant]
     Dosage: 50 MG, DAILY
     Dates: start: 20130822, end: 20130823
  20. ENDOXAN [Concomitant]
     Indication: PRECURSOR T-LYMPHOBLASTIC LYMPHOMA/LEUKAEMIA
     Dosage: 1300 MG, DAILY
     Dates: start: 20130808, end: 20130808
  21. ENDOXAN [Concomitant]
     Dosage: 500 MG, 2X/DAY
     Dates: start: 20130822, end: 20130824
  22. UROMITEXAN [Concomitant]
     Indication: PRECURSOR T-LYMPHOBLASTIC LYMPHOMA/LEUKAEMIA
     Dosage: UNK
     Dates: start: 20130808, end: 20130808
  23. UROMITEXAN [Concomitant]
     Dosage: UNK
     Dates: start: 20130822, end: 20130824
  24. HEPARIN SODIUM [Concomitant]
     Dosage: UNK
     Dates: end: 20130904
  25. LOVENOX [Concomitant]
     Dosage: UNK
     Dates: start: 20130904

REACTIONS (3)
  - Cerebral venous thrombosis [Recovered/Resolved]
  - Grand mal convulsion [Unknown]
  - Antithrombin III decreased [Unknown]
